FAERS Safety Report 25891174 (Version 1)
Quarter: 2025Q4

REPORT INFORMATION
  Report Type: Spontaneous
  Country: US (occurrence: US)
  Receive Date: 20251007
  Receipt Date: 20251007
  Transmission Date: 20260119
  Serious: No
  Sender: VERONA PHARMA
  Company Number: US-VERONA PHARMA-VER-008162

PATIENT
  Age: 72 Year
  Sex: Female

DRUGS (2)
  1. OHTUVAYRE [Suspect]
     Active Substance: ENSIFENTRINE
     Indication: Chronic obstructive pulmonary disease
     Dosage: 3 MILLIGRAM, BID
     Dates: start: 20250205, end: 20250724
  2. OHTUVAYRE [Suspect]
     Active Substance: ENSIFENTRINE
     Indication: Emphysema

REACTIONS (2)
  - Productive cough [Recovered/Resolved]
  - Inappropriate schedule of product administration [Unknown]
